FAERS Safety Report 7432055-4 (Version None)
Quarter: 2011Q2

REPORT INFORMATION
  Report Type: 
  Country: None (occurrence: None)
  Receive Date: 20110419
  Receipt Date: 20110419
  Transmission Date: 20111010
  Serious: No
  Sender: FDA-Public Use
  Company Number: None

PATIENT
  Age: 75 Year
  Sex: Female
  Weight: 63.5036 kg

DRUGS (1)
  1. ENABLEX [Suspect]
     Indication: HYPERTONIC BLADDER
     Dosage: 7.5 MG. 1 TIME A DAY
     Dates: start: 20110320, end: 20110420

REACTIONS (5)
  - ABDOMINAL DISCOMFORT [None]
  - VISION BLURRED [None]
  - DRY MOUTH [None]
  - URINARY INCONTINENCE [None]
  - DRUG INEFFECTIVE [None]
